FAERS Safety Report 9559579 (Version 1)
Quarter: 2013Q3

REPORT INFORMATION
  Report Type: Spontaneous
  Country: US (occurrence: None)
  Receive Date: 20130906
  Receipt Date: 20130906
  Transmission Date: 20140515
  Serious: Yes (Other)
  Sender: FDA-Public Use
  Company Number: 163-POMAL-13072712

PATIENT
  Age: 69 Year
  Sex: Male

DRUGS (1)
  1. POMALYST [Suspect]
     Indication: PLASMA CELL MYELOMA
     Route: 048
     Dates: start: 20130705, end: 20130725

REACTIONS (7)
  - Abdominal distension [None]
  - Dyspnoea [None]
  - Pruritus [None]
  - Local swelling [None]
  - Cough [None]
  - Asthenia [None]
  - Constipation [None]
